FAERS Safety Report 12539143 (Version 1)
Quarter: 2016Q3

REPORT INFORMATION
  Report Type: Spontaneous
  Country: US (occurrence: None)
  Receive Date: 20160707
  Receipt Date: 20160707
  Transmission Date: 20161109
  Serious: Yes (Other)
  Sender: FDA-Public Use
  Company Number: None

PATIENT
  Age: 47 Year
  Sex: Female
  Weight: 68.04 kg

DRUGS (1)
  1. PANTOPRAZOLE SOD [Suspect]
     Active Substance: PANTOPRAZOLE SODIUM
     Indication: GASTRIC ULCER
     Route: 048
     Dates: start: 20160628, end: 20160702

REACTIONS (5)
  - Pain in extremity [None]
  - Back pain [None]
  - Headache [None]
  - Chest pain [None]
  - Extrasystoles [None]

NARRATIVE: CASE EVENT DATE: 20160629
